FAERS Safety Report 10015832 (Version 1)
Quarter: 2014Q1

REPORT INFORMATION
  Report Type: Spontaneous
  Country: US (occurrence: US)
  Receive Date: 20140317
  Receipt Date: 20140317
  Transmission Date: 20141002
  Serious: Yes (Other)
  Sender: FDA-Public Use
  Company Number: US-BAYER-2014-036386

PATIENT
  Age: 50 Year
  Sex: Female

DRUGS (2)
  1. AVELOX [Suspect]
     Indication: UPPER RESPIRATORY TRACT INFECTION
     Dosage: 400 MG, QD
     Route: 048
     Dates: start: 20110304
  2. IBUPROFEN [Concomitant]
     Indication: ARTHRITIS

REACTIONS (8)
  - Hepatitis [None]
  - Hepatic cirrhosis [None]
  - Chronic hepatitis [None]
  - Jaundice [None]
  - Hepatic enzyme increased [None]
  - Nausea [None]
  - Blister [None]
  - Haemorrhoids [None]
